FAERS Safety Report 5709265-7 (Version None)
Quarter: 2008Q2

REPORT INFORMATION
  Report Type: 
  Country: None (occurrence: None)
  Receive Date: 20080418
  Receipt Date: 20080409
  Transmission Date: 20081010
  Serious: Yes (Other)
  Sender: FDA-Public Use
  Company Number: AT-JNJFOC-20080202750

PATIENT
  Age: 39 Year
  Sex: Female
  Weight: 56 kg

DRUGS (15)
  1. REMICADE [Suspect]
     Route: 042
  2. REMICADE [Suspect]
     Dosage: TWO INFUSIONS RECEIVED, DATES UNSPECIFIED
     Route: 042
  3. REMICADE [Suspect]
     Dosage: THREE INFUSIONS RECEIVED, DATES UNSPECIFIED
     Route: 042
  4. REMICADE [Suspect]
     Indication: CROHN'S DISEASE
     Dosage: THREE INFUSIONS RECEIVED, DATES UNSPECIFIED
     Route: 042
  5. ANAFRANIL [Suspect]
     Indication: PANIC ATTACK
     Route: 048
  6. ANAFRANIL [Suspect]
     Indication: DEPRESSION
     Route: 048
  7. ENTOCORT EC [Concomitant]
     Indication: CROHN'S DISEASE
     Route: 048
  8. IMUREK [Concomitant]
     Indication: CROHN'S DISEASE
     Route: 048
  9. PANCREATIN TRIPLE STRENGTH CAP [Concomitant]
     Indication: GASTROINTESTINAL DISORDER
     Route: 048
  10. AMYLASE [Concomitant]
     Indication: GASTROINTESTINAL DISORDER
  11. MUTAFLOR [Concomitant]
     Indication: CROHN'S DISEASE
  12. MUTAFLOR [Concomitant]
     Indication: GASTROINTESTINAL DISORDER
  13. LACTOBACTERIUM ACIDOPHILUM [Concomitant]
     Indication: CROHN'S DISEASE
  14. LACTOBACTERIUM ACIDOPHILUM [Concomitant]
     Indication: GASTROINTESTINAL DISORDER
  15. AZATHIOPRINE [Concomitant]
     Indication: CROHN'S DISEASE
     Route: 048

REACTIONS (12)
  - BRONCHOSPASM [None]
  - CHEST DISCOMFORT [None]
  - CONFUSIONAL STATE [None]
  - DIZZINESS [None]
  - DYSPNOEA [None]
  - FEELING HOT [None]
  - HEADACHE [None]
  - HOT FLUSH [None]
  - HYPERSENSITIVITY [None]
  - NAUSEA [None]
  - RASH [None]
  - TACHYCARDIA [None]
